FAERS Safety Report 22746581 (Version 9)
Quarter: 2024Q4

REPORT INFORMATION
  Report Type: Report from Study
  Country: CL (occurrence: CL)
  Receive Date: 20230725
  Receipt Date: 20241211
  Transmission Date: 20250115
  Serious: Yes (Other)
  Sender: NOVARTIS
  Company Number: CL-002147023-NVSC2022CL264463

PATIENT
  Age: 31 Year
  Sex: Female

DRUGS (13)
  1. KESIMPTA [Suspect]
     Active Substance: OFATUMUMAB
     Indication: Multiple sclerosis
     Dosage: 20 MG, QMO
     Route: 058
     Dates: start: 20220915
  2. KESIMPTA [Suspect]
     Active Substance: OFATUMUMAB
     Dosage: UNK
     Route: 065
     Dates: start: 20230518
  3. KESIMPTA [Suspect]
     Active Substance: OFATUMUMAB
     Dosage: UNK, QMO
     Route: 058
     Dates: start: 20230718
  4. KESIMPTA [Suspect]
     Active Substance: OFATUMUMAB
     Dosage: UNK
     Route: 058
     Dates: start: 20240118
  5. KESIMPTA [Suspect]
     Active Substance: OFATUMUMAB
     Dosage: UNK
     Route: 065
     Dates: start: 20240518
  6. KESIMPTA [Suspect]
     Active Substance: OFATUMUMAB
     Dosage: UNK, QMO (ON 18TH OF  EVERY  MONTH)
     Route: 058
  7. KESIMPTA [Suspect]
     Active Substance: OFATUMUMAB
     Dosage: UNK
     Route: 065
     Dates: start: 20240821
  8. KESIMPTA [Suspect]
     Active Substance: OFATUMUMAB
     Dosage: UNK
     Route: 065
     Dates: start: 20241021
  9. ACETAMINOPHEN [Concomitant]
     Active Substance: ACETAMINOPHEN
     Indication: Product used for unknown indication
     Dosage: 1 G, Q8H
     Route: 065
  10. IPRATROPIUM BROMIDE [Concomitant]
     Active Substance: IPRATROPIUM BROMIDE
     Indication: Product used for unknown indication
     Dosage: UNK, Q12H
     Route: 065
  11. DESLORATADINE [Concomitant]
     Active Substance: DESLORATADINE
     Indication: Product used for unknown indication
     Dosage: 1 DOSAGE FORM (TABLET), QD
     Route: 065
  12. ALBUTEROL [Concomitant]
     Active Substance: ALBUTEROL
     Indication: Product used for unknown indication
     Dosage: 3 DOSAGE FORM, Q6H
     Route: 065
  13. ALBUTEROL [Concomitant]
     Active Substance: ALBUTEROL
     Dosage: 3 DOSAGE FORM, Q8H
     Route: 065

REACTIONS (19)
  - Pneumonia [Not Recovered/Not Resolved]
  - Perfume sensitivity [Unknown]
  - Cough [Recovered/Resolved]
  - Dysphonia [Unknown]
  - Nasal congestion [Unknown]
  - Nasopharyngitis [Unknown]
  - Influenza [Recovered/Resolved]
  - Illness [Recovered/Resolved]
  - Throat clearing [Recovered/Resolved]
  - Bronchitis [Recovering/Resolving]
  - Fall [Not Recovered/Not Resolved]
  - Contusion [Unknown]
  - Rhinitis allergic [Not Recovered/Not Resolved]
  - Secretion discharge [Unknown]
  - Odynophagia [Unknown]
  - Throat clearing [Unknown]
  - Rhinorrhoea [Unknown]
  - Product dispensing issue [Unknown]
  - Inappropriate schedule of product administration [Unknown]

NARRATIVE: CASE EVENT DATE: 20240514
